FAERS Safety Report 24371696 (Version 1)
Quarter: 2024Q3

REPORT INFORMATION
  Report Type: Spontaneous
  Country: US (occurrence: None)
  Receive Date: 20240926
  Receipt Date: 20240926
  Transmission Date: 20241017
  Serious: No
  Sender: Public
  Company Number: None

PATIENT
  Sex: Male

DRUGS (1)
  1. OXBRYTA [Suspect]
     Active Substance: VOXELOTOR
     Indication: Sickle cell disease
     Dosage: FREQUENCY : DAILY;?
     Route: 048
     Dates: start: 202403

REACTIONS (8)
  - Rash [None]
  - Rash pruritic [None]
  - Exfoliative rash [None]
  - Burning sensation [None]
  - Diarrhoea [None]
  - Lip blister [None]
  - Lip pain [None]
  - Paraesthesia oral [None]
